FAERS Safety Report 8976435 (Version 1)
Quarter: 2012Q4

REPORT INFORMATION
  Report Type: 
  Country: FR (occurrence: FR)
  Receive Date: 20121220
  Receipt Date: 20121220
  Transmission Date: 20130627
  Serious: No
  Sender: FDA-Public Use
  Company Number: FR-JNJFOC-20121204706

PATIENT
  Age: 80 Year
  Sex: Female

DRUGS (2)
  1. DUROGESIC [Suspect]
     Indication: RHEUMATOID ARTHRITIS
     Route: 062
  2. DAFALGAN [Concomitant]
     Indication: PAIN
     Route: 048

REACTIONS (2)
  - Drug ineffective [Unknown]
  - Inappropriate schedule of drug administration [Unknown]
